FAERS Safety Report 9357233 (Version 1)
Quarter: 2013Q2

REPORT INFORMATION
  Report Type: Spontaneous
  Country: FR (occurrence: FR)
  Receive Date: 20130620
  Receipt Date: 20130620
  Transmission Date: 20140414
  Serious: Yes (Hospitalization)
  Sender: FDA-Public Use
  Company Number: FR-009507513-1306FRA006399

PATIENT
  Age: 87 Year
  Sex: Female

DRUGS (7)
  1. TRUSOPT 20MG/ML, COLLYRE EN SOLUTION [Suspect]
     Indication: GLAUCOMA
     Dosage: UNK
     Route: 047
     Dates: end: 20120813
  2. LAMALINE (NEW FORMULA) [Suspect]
     Indication: PAIN
     Dosage: 2 DF, TID
     Route: 048
     Dates: end: 20120813
  3. ASPEGIC [Suspect]
     Indication: PROPHYLAXIS
     Dosage: 100 MG, QD
     Route: 048
     Dates: end: 20120813
  4. LYRICA [Suspect]
     Indication: ANXIETY
     Dosage: 25 MG, QD
     Route: 048
     Dates: end: 20120817
  5. TELFAST [Suspect]
     Indication: HYPERSENSITIVITY
     Dosage: 180 MG, QD
     Route: 048
     Dates: end: 20120813
  6. TRAVATAN [Suspect]
     Indication: GLAUCOMA
     Dosage: UNK
     Route: 047
     Dates: end: 20120813
  7. PLAVIX [Suspect]
     Dosage: 75 MG, QD
     Route: 048
     Dates: end: 20120813

REACTIONS (2)
  - Confusional state [Recovered/Resolved]
  - Hallucination [Recovered/Resolved]
